FAERS Safety Report 12841193 (Version 3)
Quarter: 2016Q4

REPORT INFORMATION
  Report Type: Report from Study
  Country: FR (occurrence: FR)
  Receive Date: 20161012
  Receipt Date: 20161122
  Transmission Date: 20170207
  Serious: Yes (Hospitalization, Other)
  Sender: FDA-Public Use
  Company Number: FR-EXELIXIS-XL18416007276

PATIENT
  Age: 19 Year
  Sex: Female
  Weight: 47 kg

DRUGS (4)
  1. XL184 [Suspect]
     Active Substance: CABOZANTINIB
     Indication: OSTEOSARCOMA
     Dosage: 60 MG, QD
     Route: 048
     Dates: start: 20160601, end: 2016
  2. LEVOTHYROX [Concomitant]
     Active Substance: LEVOTHYROXINE
     Indication: HYPOTHYROIDISM
  3. LEELOO [Concomitant]
     Active Substance: ETHINYL ESTRADIOL\LEVONORGESTREL
     Indication: CONTRACEPTION
     Dosage: UNK
  4. XL184 [Suspect]
     Active Substance: CABOZANTINIB
     Dosage: 40 MG, QD
     Route: 048
     Dates: start: 2016

REACTIONS (3)
  - Pneumothorax [Recovered/Resolved]
  - Pneumothorax [Recovered/Resolved]
  - Pneumothorax [Recovered/Resolved]

NARRATIVE: CASE EVENT DATE: 20160824
